FAERS Safety Report 6370151-3 (Version None)
Quarter: 2009Q3

REPORT INFORMATION
  Report Type: 
  Country: None (occurrence: None)
  Receive Date: 20090923
  Receipt Date: 20080625
  Transmission Date: 20100115
  Serious: Yes (Other)
  Sender: FDA-Public Use
  Company Number: US-ASTRAZENECA-2006UW21272

PATIENT
  Age: 38 Year
  Sex: Female
  Weight: 74.8 kg

DRUGS (14)
  1. SEROQUEL [Suspect]
     Indication: BIPOLAR DISORDER
     Route: 048
     Dates: start: 20020101, end: 20030801
  2. SEROQUEL [Suspect]
     Indication: DEPRESSION
     Route: 048
     Dates: start: 20020101, end: 20030801
  3. LORTAB [Concomitant]
     Indication: MUSCULOSKELETAL PAIN
     Dates: start: 20071210
  4. ELAVIL [Concomitant]
     Indication: POOR QUALITY SLEEP
     Dates: start: 20071227
  5. CIPRO [Concomitant]
     Indication: DYSURIA
     Dates: start: 20071227
  6. OXYBUTIN [Concomitant]
     Dates: start: 20070906
  7. PHENERGAN [Concomitant]
     Indication: PAIN
     Dates: start: 20071231
  8. NEXIUM [Concomitant]
     Route: 048
     Dates: start: 20071231
  9. TRAZODONE [Concomitant]
     Indication: PSYCHIATRIC SYMPTOM
     Dates: start: 20060322
  10. SUSTIVA [Concomitant]
     Dates: start: 20070720
  11. NEURONTIN [Concomitant]
     Indication: NEUROPATHY PERIPHERAL
     Dates: start: 20070720
  12. KALETRA [Concomitant]
     Dates: start: 20070920
  13. CELEBREX [Concomitant]
     Indication: OSTEOARTHRITIS
     Dates: start: 20060322
  14. CELEBREX [Concomitant]
     Indication: TENDONITIS
     Dates: start: 20060322

REACTIONS (1)
  - PANCREATITIS [None]
